FAERS Safety Report 15822671 (Version 1)
Quarter: 2018Q4

REPORT INFORMATION
  Report Type: Spontaneous
  Country: US (occurrence: US)
  Receive Date: 20181214
  Receipt Date: 20181214
  Transmission Date: 20190205
  Serious: Yes (Hospitalization)
  Sender: FDA-Public Use
  Company Number: None

PATIENT
  Age: 22 Year
  Sex: Male
  Weight: 83.7 kg

DRUGS (3)
  1. ETOPOSIDE (VP-16) [Suspect]
     Active Substance: ETOPOSIDE
     Dates: end: 20181129
  2. CISPLATIN. [Suspect]
     Active Substance: CISPLATIN
     Dates: end: 20181127
  3. XGEVA [Concomitant]
     Active Substance: DENOSUMAB

REACTIONS (3)
  - Inappropriate antidiuretic hormone secretion [None]
  - Hypocalcaemia [None]
  - Nausea [None]

NARRATIVE: CASE EVENT DATE: 20181205
